FAERS Safety Report 5407172-0 (Version None)
Quarter: 2007Q3

REPORT INFORMATION
  Report Type: 
  Country: None (occurrence: None)
  Receive Date: 20070807
  Receipt Date: 20070731
  Transmission Date: 20080115
  Serious: Yes (Hospitalization, Disabling)
  Sender: FDA-Public Use
  Company Number: US-MERCK-0701USA03375

PATIENT
  Age: 52 Year
  Sex: Female

DRUGS (23)
  1. FOSAMAX [Suspect]
     Indication: OSTEOPOROSIS
     Route: 048
     Dates: start: 19980101, end: 20060901
  2. HORMONES (UNSPECIFIED) [Concomitant]
     Route: 065
  3. [THERAPY UNSPECIFIED] [Concomitant]
     Route: 065
  4. NEXIUM [Concomitant]
     Indication: GASTROOESOPHAGEAL REFLUX DISEASE
     Route: 065
     Dates: start: 19990101
  5. PRILOSEC [Concomitant]
     Indication: GASTROOESOPHAGEAL REFLUX DISEASE
     Route: 065
     Dates: start: 19990101
  6. ALBUTEROL [Concomitant]
     Indication: ASTHMA
     Route: 065
     Dates: start: 19900101
  7. ALBUTEROL [Concomitant]
     Indication: CHRONIC OBSTRUCTIVE PULMONARY DISEASE
     Route: 065
     Dates: start: 19900101
  8. FLOVENT [Concomitant]
     Indication: ASTHMA
     Route: 065
     Dates: start: 19900101
  9. FLOVENT [Concomitant]
     Indication: CHRONIC OBSTRUCTIVE PULMONARY DISEASE
     Route: 065
     Dates: start: 19900101
  10. VENTOLIN [Concomitant]
     Indication: ASTHMA
     Route: 065
     Dates: start: 19900101
  11. VENTOLIN [Concomitant]
     Indication: CHRONIC OBSTRUCTIVE PULMONARY DISEASE
     Route: 065
     Dates: start: 19900101
  12. MIRAPEX [Concomitant]
     Indication: RESTLESS LEGS SYNDROME
     Route: 065
     Dates: start: 20000101
  13. CLARITIN [Concomitant]
     Indication: HYPERSENSITIVITY
     Route: 065
     Dates: start: 20010101
  14. DEXOPHEN [Concomitant]
     Indication: HYPERSENSITIVITY
     Route: 065
     Dates: start: 20010101
  15. PROCARDIA [Concomitant]
     Indication: HYPERTENSION
     Route: 065
     Dates: start: 19950101
  16. NORVASC [Concomitant]
     Indication: HYPERTENSION
     Route: 065
     Dates: start: 19950101
  17. HYDROCHLOROTHIAZIDE [Concomitant]
     Indication: HYPERTENSION
     Route: 065
     Dates: start: 19900101
  18. ACETAMINOPHEN AND HYDROCODONE BITARTRATE [Concomitant]
     Indication: FIBROMYALGIA
     Route: 065
     Dates: start: 19990101
  19. K-DUR 10 [Concomitant]
     Indication: BLOOD POTASSIUM DECREASED
     Route: 065
     Dates: start: 20010101
  20. ZOLOFT [Concomitant]
     Indication: DEPRESSION
     Route: 065
     Dates: start: 19990101
  21. ZOLOFT [Concomitant]
     Indication: ANXIETY
     Route: 065
     Dates: start: 19990101
  22. LEXAPRO [Concomitant]
     Route: 065
     Dates: start: 19990101
  23. FLORINEF [Concomitant]
     Route: 065
     Dates: start: 20010101

REACTIONS (18)
  - ABDOMINAL PAIN [None]
  - ADRENAL NEOPLASM [None]
  - ANAEMIA [None]
  - ANIMAL BITE [None]
  - ANXIETY [None]
  - CHEST PAIN [None]
  - DEPRESSION [None]
  - GASTROINTESTINAL DISORDER [None]
  - HAEMORRHOIDS [None]
  - HYPONATRAEMIA [None]
  - INTERSTITIAL LUNG DISEASE [None]
  - IRRITABLE BOWEL SYNDROME [None]
  - NASAL DISORDER [None]
  - OSTEOMYELITIS [None]
  - OSTEONECROSIS [None]
  - PARALYSIS [None]
  - PNEUMONIA [None]
  - SKELETAL INJURY [None]
